FAERS Safety Report 9036885 (Version 1)
Quarter: 2013Q1

REPORT INFORMATION
  Report Type: Report from Study
  Country: US (occurrence: US)
  Receive Date: 20130129
  Receipt Date: 20130129
  Transmission Date: 20140127
  Serious: No
  Sender: FDA-Public Use
  Company Number: US-ABBOTT-12P-163-0898847-00

PATIENT
  Sex: Female
  Weight: 59.02 kg

DRUGS (12)
  1. HUMIRA 40 MG/0.8 ML PEN [Suspect]
     Indication: RHEUMATOID ARTHRITIS
     Dates: start: 201111
  2. MYCOPHENALATE [Concomitant]
     Indication: RHEUMATOID ARTHRITIS
  3. DICYCLOMINE [Concomitant]
     Indication: IRRITABLE BOWEL SYNDROME
  4. NEXIUM [Concomitant]
     Indication: GASTROOESOPHAGEAL REFLUX DISEASE
  5. TOPAMAX [Concomitant]
     Indication: CONVULSION
  6. PLAQUENIL [Concomitant]
     Indication: RHEUMATOID ARTHRITIS
  7. POTASSIUM [Concomitant]
     Indication: MINERAL SUPPLEMENTATION
  8. ZYRTEC [Concomitant]
     Indication: HYPERSENSITIVITY
  9. CALCIUM WITH VITAMIN D [Concomitant]
     Indication: MINERAL SUPPLEMENTATION
  10. ALTACE [Concomitant]
     Indication: BLOOD PRESSURE
  11. UNKNOWN WATER PILL [Concomitant]
     Indication: INFLAMMATION
  12. HYDROCODONE [Concomitant]
     Indication: ARTHRALGIA

REACTIONS (5)
  - Rash [Recovered/Resolved]
  - Pruritus [Recovered/Resolved]
  - Pruritus [Recovered/Resolved]
  - Rash [Recovered/Resolved]
  - Pruritus [Recovered/Resolved]
